FAERS Safety Report 5442863-7 (Version None)
Quarter: 2007Q3

REPORT INFORMATION
  Report Type: 
  Country: None (occurrence: None)
  Receive Date: 20070830
  Receipt Date: 20070822
  Transmission Date: 20080115
  Serious: Yes (Hospitalization)
  Sender: FDA-Public Use
  Company Number: 2006BI015991

PATIENT
  Sex: Female

DRUGS (14)
  1. NATALIZUMAB [Suspect]
     Indication: MULTIPLE SCLEROSIS
     Dosage: 300 MG; QM; IV
     Route: 042
     Dates: start: 20061010
  2. AVONEX [Concomitant]
  3. RYTHMOL [Concomitant]
  4. ZOLOFT [Concomitant]
  5. OXYBUTYNIN` [Concomitant]
  6. TRAMADOL HCL [Concomitant]
  7. ADVAIR DISKUS 100/50 [Concomitant]
  8. FLOVENT [Concomitant]
  9. TRAZODONE HCL [Concomitant]
  10. LORTAB [Concomitant]
  11. PHENERGAN HCL [Concomitant]
  12. RESTORIL [Concomitant]
  13. CORED CR [Concomitant]
  14. ATROVENT [Concomitant]

REACTIONS (11)
  - CARDIAC FAILURE CONGESTIVE [None]
  - CATARACT [None]
  - CHEST PAIN [None]
  - COGNITIVE DISORDER [None]
  - DIZZINESS [None]
  - GAIT DISTURBANCE [None]
  - GLAUCOMA [None]
  - HAEMORRHAGE [None]
  - INTERNATIONAL NORMALISED RATIO INCREASED [None]
  - OPTIC NERVE INJURY [None]
  - VISION BLURRED [None]
